FAERS Safety Report 18225632 (Version 2)
Quarter: 2020Q3

REPORT INFORMATION
  Report Type: Report from Study
  Country: None (occurrence: US)
  Receive Date: 20200903
  Receipt Date: 20200907
  Transmission Date: 20201103
  Serious: Yes (Hospitalization, Other)
  Sender: FDA-Public Use
  Company Number: US-ABBVIE-20K-163-3545691-00

PATIENT
  Age: 48 Year
  Sex: Female

DRUGS (2)
  1. HUMIRA [Suspect]
     Active Substance: ADALIMUMAB
     Indication: PSORIATIC ARTHROPATHY
     Route: 058
     Dates: start: 201901, end: 201905
  2. HUMIRA [Suspect]
     Active Substance: ADALIMUMAB
     Indication: PSORIASIS
     Route: 058
     Dates: start: 20200826

REACTIONS (12)
  - Gait disturbance [Unknown]
  - Joint stiffness [Unknown]
  - Gastric bypass [Unknown]
  - Arthralgia [Unknown]
  - Nausea [Recovered/Resolved]
  - Haematoma [Unknown]
  - Joint swelling [Unknown]
  - Thrombosis [Unknown]
  - Pain [Unknown]
  - Postoperative wound infection [Unknown]
  - Sepsis [Unknown]
  - Psoriasis [Unknown]

NARRATIVE: CASE EVENT DATE: 201901
